FAERS Safety Report 15202532 (Version 7)
Quarter: 2018Q4

REPORT INFORMATION
  Report Type: Report from Study
  Country: CO (occurrence: CO)
  Receive Date: 20180726
  Receipt Date: 20181228
  Transmission Date: 20190204
  Serious: Yes (Other)
  Sender: FDA-Public Use
  Company Number: CO-SA-2018SA203305

PATIENT
  Age: 46 Year
  Sex: Female

DRUGS (1)
  1. ALEMTUZUMAB [Suspect]
     Active Substance: ALEMTUZUMAB
     Indication: MULTIPLE SCLEROSIS
     Dosage: 12 MG, QD
     Route: 041
     Dates: start: 20180723, end: 20180727

REACTIONS (19)
  - Asthenia [Unknown]
  - Chills [Unknown]
  - Haemodynamic instability [Unknown]
  - Nitrite urine present [Recovered/Resolved]
  - General physical health deterioration [Unknown]
  - Diarrhoea [Unknown]
  - Headache [Unknown]
  - Lymphocyte count decreased [Not Recovered/Not Resolved]
  - Hypertension [Unknown]
  - Neutrophil count decreased [Recovered/Resolved]
  - Hypertensive crisis [Unknown]
  - Red blood cells urine positive [Not Recovered/Not Resolved]
  - Tachycardia [Unknown]
  - Urinary tract infection [Recovered/Resolved]
  - Leukocyturia [Not Recovered/Not Resolved]
  - Malaise [Unknown]
  - Pallor [Unknown]
  - White blood cell count decreased [Recovered/Resolved]
  - Bacteriuria [Not Recovered/Not Resolved]

NARRATIVE: CASE EVENT DATE: 20180723
